FAERS Safety Report 16235796 (Version 1)
Quarter: 2019Q2

REPORT INFORMATION
  Report Type: Report from Study
  Country: ZA (occurrence: ZA)
  Receive Date: 20190424
  Receipt Date: 20190424
  Transmission Date: 20190711
  Serious: Yes (Hospitalization)
  Sender: FDA-Public Use
  Company Number: PHHY2017ZA076749

PATIENT
  Age: 35 Year
  Sex: Female

DRUGS (3)
  1. TUVIGIN [Suspect]
     Active Substance: FINGOLIMOD HYDROCHLORIDE
     Indication: RELAPSING-REMITTING MULTIPLE SCLEROSIS
     Dosage: 0.5 MG, QOD
     Route: 048
  2. CORTISONE [Suspect]
     Active Substance: CORTISONE\HYDROCORTISONE
     Indication: MULTIPLE SCLEROSIS RELAPSE
     Dosage: UNK
     Route: 065
  3. TUVIGIN [Suspect]
     Active Substance: FINGOLIMOD HYDROCHLORIDE
     Indication: MULTIPLE SCLEROSIS
     Dosage: 0.5 MG, QD
     Route: 048
     Dates: start: 20160728

REACTIONS (18)
  - Hyperreflexia [Unknown]
  - Malaise [Unknown]
  - Extensor plantar response [Unknown]
  - Hot flush [Unknown]
  - Vomiting [Unknown]
  - Pharyngitis [Unknown]
  - Tooth abscess [Recovering/Resolving]
  - Multiple sclerosis relapse [Unknown]
  - Muscular weakness [Unknown]
  - Gastroenteritis viral [Recovering/Resolving]
  - Hypoaesthesia [Unknown]
  - Somnolence [Unknown]
  - Clonus [Unknown]
  - Abdominal discomfort [Unknown]
  - Decreased immune responsiveness [Unknown]
  - Diarrhoea [Unknown]
  - Underdose [Unknown]
  - Inappropriate schedule of product administration [Unknown]

NARRATIVE: CASE EVENT DATE: 201704
